FAERS Safety Report 16323441 (Version 1)
Quarter: 2019Q2

REPORT INFORMATION
  Report Type: Spontaneous
  Country: US (occurrence: US)
  Receive Date: 20190517
  Receipt Date: 20190517
  Transmission Date: 20190711
  Serious: No
  Sender: FDA-Public Use
  Company Number: US-HORIZON-PRO-0102-2019

PATIENT
  Age: 33 Year
  Sex: Female

DRUGS (1)
  1. PROCYSBI [Suspect]
     Active Substance: CYSTEAMINE BITARTRATE
     Indication: AMINO ACID METABOLISM DISORDER
     Dosage: 1350 MG EVERY 12 HOURS

REACTIONS (2)
  - Product dose omission [Unknown]
  - Gastroenteritis viral [Unknown]

NARRATIVE: CASE EVENT DATE: 201905
